FAERS Safety Report 6532052-7 (Version None)
Quarter: 2010Q1

REPORT INFORMATION
  Report Type: 
  Country: None (occurrence: None)
  Receive Date: 20100107
  Receipt Date: 20100107
  Transmission Date: 20100710
  Serious: Yes (Hospitalization)
  Sender: FDA-Public Use
  Company Number: None

PATIENT
  Sex: Female
  Weight: 6.78 kg

DRUGS (34)
  1. THIOTEPA [Suspect]
     Dosage: 134 MG
  2. METHOTREXATE [Suspect]
     Dosage: 2.5 MG
  3. CARBOPLATIN [Suspect]
     Dosage: 230 MG
  4. AMBISOME [Concomitant]
  5. AMBISOME [Concomitant]
  6. ATIVAN [Concomitant]
  7. BOSENTAN [Concomitant]
  8. CHLORAL HYDRATE [Concomitant]
  9. CIPROFLOXACIN [Concomitant]
  10. CLONIDINE [Concomitant]
  11. DIPENHYDRAMINE [Concomitant]
  12. FENTANYL-100 [Concomitant]
  13. FRUSEMIDE [Concomitant]
  14. FUROSEMIDE [Concomitant]
  15. HYDRALAZINE [Concomitant]
  16. INO [Concomitant]
  17. LACTULOSE [Concomitant]
  18. LASIX [Concomitant]
  19. LORAZEPAM [Concomitant]
  20. MEROPENEM [Concomitant]
  21. METHYLPREDNISOLONE ACETATE [Concomitant]
  22. METOCLOPRAMIDE [Concomitant]
  23. MILRINONE [Concomitant]
  24. MORPHINE [Concomitant]
  25. NITRIC OXIDE [Concomitant]
  26. PAERALYSIS [Concomitant]
  27. PANCURONIUM BROMIDE [Concomitant]
  28. PANTOPRAZOLE [Concomitant]
  29. PENICILIN [Concomitant]
  30. PENTAMIDE [Concomitant]
  31. RANITIDINE [Concomitant]
  32. RIFAMPIN [Concomitant]
  33. SODIUM BICARB [Concomitant]
  34. VANCOMYCIN [Concomitant]

REACTIONS (14)
  - BILIRUBIN CONJUGATED INCREASED [None]
  - BLOOD BILIRUBIN ABNORMAL [None]
  - DEVICE RELATED INFECTION [None]
  - GAMMA-GLUTAMYLTRANSFERASE INCREASED [None]
  - GENERAL PHYSICAL HEALTH DETERIORATION [None]
  - LEUKOPENIA [None]
  - MUSCULOSKELETAL STIFFNESS [None]
  - NEUTROPHIL COUNT ABNORMAL [None]
  - PLATELET COUNT DECREASED [None]
  - PULMONARY VASCULAR DISORDER [None]
  - PULMONARY VENO-OCCLUSIVE DISEASE [None]
  - RESPIRATORY FAILURE [None]
  - STEM CELL TRANSPLANT [None]
  - THERAPEUTIC AGENT TOXICITY [None]
